FAERS Safety Report 7041325-3 (Version None)
Quarter: 2010Q3

REPORT INFORMATION
  Report Type: 
  Country: None (occurrence: None)
  Receive Date: 20100929
  Receipt Date: 20100820
  Transmission Date: 20110219
  Serious: No
  Sender: FDA-Public Use
  Company Number: US-WYE-H17104910

PATIENT
  Sex: Female

DRUGS (2)
  1. PRISTIQ [Suspect]
  2. ZOLOFT [Suspect]
     Dosage: 200 MG 1X PER 1 DAY; 100 MG 1X PER 1 DAY

REACTIONS (3)
  - DEPRESSION [None]
  - DRUG EFFECT DECREASED [None]
  - RESTLESSNESS [None]
